FAERS Safety Report 9700463 (Version 2)
Quarter: 2013Q4

REPORT INFORMATION
  Report Type: Spontaneous
  Country: MA (occurrence: None)
  Receive Date: 20131119
  Receipt Date: 20131204
  Transmission Date: 20140711
  Serious: Yes (Hospitalization)
  Sender: FDA-Public Use
  Company Number: FK201304747

PATIENT
  Age: 45 Year
  Sex: Female

DRUGS (3)
  1. CYTARABINE [Suspect]
     Indication: ACUTE MYELOID LEUKAEMIA
     Dosage: 30 MG, INTRATHECAL
     Route: 037
  2. METHOTREXATE [Suspect]
     Indication: ACUTE MYELOID LEUKAEMIA
     Route: 037
  3. HYDROCORTISONE HEMISUCCINATE [Suspect]
     Indication: ACUTE MYELOID LEUKAEMIA
     Route: 037

REACTIONS (8)
  - Leukocytosis [None]
  - Myelopathy [None]
  - Oedema [None]
  - Neurological symptom [None]
  - Septic shock [None]
  - Paralysis flaccid [None]
  - Conus medullaris syndrome [None]
  - Pathogen resistance [None]
